FAERS Safety Report 16997828 (Version 1)
Quarter: 2019Q4

REPORT INFORMATION
  Report Type: Spontaneous
  Country: US (occurrence: US)
  Receive Date: 20191101
  Receipt Date: 20191101
  Transmission Date: 20200122
  Serious: Yes (Death)
  Sender: FDA-Public Use
  Company Number: None

PATIENT
  Age: 50 Year
  Sex: Female

DRUGS (3)
  1. LETROZOLE -2.5MG [Suspect]
     Active Substance: LETROZOLE
     Indication: BREAST CANCER FEMALE
     Dosage: ?          OTHER FREQUENCY:QD 21/28 DAYS;?
     Route: 048
     Dates: start: 20180202
  2. XGEVA [Concomitant]
     Active Substance: DENOSUMAB
  3. IBRANCE [Suspect]
     Active Substance: PALBOCICLIB
     Dosage: DAILY 21OF 28 DAYS
     Route: 048
     Dates: start: 20180110

REACTIONS (1)
  - Death [None]

NARRATIVE: CASE EVENT DATE: 20190930
